FAERS Safety Report 6428349-1 (Version None)
Quarter: 2009Q4

REPORT INFORMATION
  Report Type: 
  Country: None (occurrence: None)
  Receive Date: 20091104
  Receipt Date: 20091104
  Transmission Date: 20100525
  Serious: Yes (Life-Threatening)
  Sender: FDA-Public Use
  Company Number: None

PATIENT
  Age: 50 Year
  Sex: Male

DRUGS (2)
  1. VANCOMYCIN [Suspect]
     Indication: OSTEOMYELITIS
     Dosage: 1000 MG BID IV
     Route: 042
     Dates: start: 20081227, end: 20090204
  2. VANCOMYCIN [Suspect]
     Indication: UPPER RESPIRATORY TRACT INFECTION
     Dosage: 1000 MG BID IV
     Route: 042
     Dates: start: 20081227, end: 20090204

REACTIONS (1)
  - LEUKOPENIA [None]
